FAERS Safety Report 9447804 (Version 1)
Quarter: 2013Q3

REPORT INFORMATION
  Report Type: Spontaneous
  Country: BR (occurrence: BR)
  Receive Date: 20130808
  Receipt Date: 20130808
  Transmission Date: 20140515
  Serious: Yes (Other)
  Sender: FDA-Public Use
  Company Number: BR-009507513-1306BRA013791

PATIENT
  Sex: Male
  Weight: 75 kg

DRUGS (2)
  1. LOSARTAN POTASSIUM [Suspect]
     Indication: HYPERTENSION
     Dosage: UNK UNK, UNKNOWN
     Route: 048
  2. HYDROCHLOROTHIAZIDE [Concomitant]
     Indication: HYPERTENSION
     Dosage: 1 TABLET, QD

REACTIONS (3)
  - Cholecystectomy [Unknown]
  - Diabetes mellitus [Not Recovered/Not Resolved]
  - Hepatitis C [Not Recovered/Not Resolved]
